FAERS Safety Report 12188894 (Version 1)
Quarter: 2016Q1

REPORT INFORMATION
  Report Type: Spontaneous
  Country: US (occurrence: US)
  Receive Date: 20160317
  Receipt Date: 20160317
  Transmission Date: 20160526
  Serious: No
  Sender: FDA-Public Use
  Company Number: US-PERRIGO-15US008789

PATIENT
  Age: 46 Year
  Sex: Male
  Weight: 117.91 kg

DRUGS (3)
  1. TESTOSTERONE CYPIONATE. [Suspect]
     Active Substance: TESTOSTERONE CYPIONATE
     Dosage: 100 MG, SINGLE
     Route: 065
     Dates: start: 20150818, end: 20150818
  2. TESTOSTERONE CYPIONATE. [Suspect]
     Active Substance: TESTOSTERONE CYPIONATE
     Dosage: 100 MG, WEEKLY
     Route: 065
     Dates: start: 201505, end: 20150817
  3. TESTOSTERONE CYPIONATE. [Suspect]
     Active Substance: TESTOSTERONE CYPIONATE
     Indication: BLOOD TESTOSTERONE DECREASED
     Dosage: UNKNOWN, WEEKLY
     Route: 030
     Dates: start: 2012, end: 201505

REACTIONS (8)
  - Insomnia [Recovering/Resolving]
  - Inappropriate schedule of drug administration [Recovered/Resolved]
  - Energy increased [Recovering/Resolving]
  - Muscle spasms [Recovering/Resolving]
  - Muscle tightness [Recovering/Resolving]
  - Palpitations [Recovering/Resolving]
  - Decreased appetite [Recovering/Resolving]
  - Drug administered at inappropriate site [Recovered/Resolved]

NARRATIVE: CASE EVENT DATE: 2012
